FAERS Safety Report 14677189 (Version 1)
Quarter: 2018Q1

REPORT INFORMATION
  Report Type: Spontaneous
  Country: US (occurrence: US)
  Receive Date: 20180323
  Receipt Date: 20180323
  Transmission Date: 20180509
  Serious: Yes (Other)
  Sender: FDA-Public Use
  Company Number: None

PATIENT
  Age: 57 Year
  Sex: Female
  Weight: 74.25 kg

DRUGS (6)
  1. ESTRADIOL VAGINAL INSERTS, USP 10 MCG [Suspect]
     Active Substance: ESTRADIOL
     Indication: PROPHYLAXIS URINARY TRACT INFECTION
     Dosage: ?          QUANTITY:1 TABLET(S);OTHER FREQUENCY:TWICE WEEKLY;?
     Route: 067
     Dates: start: 20180223, end: 20180306
  2. YUVAFEM [Concomitant]
     Active Substance: ESTRADIOL HEMIHYDRATE
  3. DAILY MULTIVITAMIN [Concomitant]
     Active Substance: VITAMINS
  4. LIPOTOR [Concomitant]
  5. SYNTHROID [Concomitant]
     Active Substance: LEVOTHYROXINE SODIUM
  6. ESTRADIOL VAGINAL INSERTS, USP 10 MCG [Suspect]
     Active Substance: ESTRADIOL
     Indication: VULVOVAGINAL DRYNESS
     Dosage: ?          QUANTITY:1 TABLET(S);OTHER FREQUENCY:TWICE WEEKLY;?
     Route: 067
     Dates: start: 20180223, end: 20180306

REACTIONS (3)
  - Product substitution issue [None]
  - Vulvovaginal burning sensation [None]
  - Vulvovaginal inflammation [None]

NARRATIVE: CASE EVENT DATE: 20180306
